FAERS Safety Report 15195787 (Version 1)
Quarter: 2018Q3

REPORT INFORMATION
  Report Type: Spontaneous
  Country: US (occurrence: US)
  Receive Date: 20180725
  Receipt Date: 20180725
  Transmission Date: 20181010
  Serious: No
  Sender: FDA-Public Use
  Company Number: US-PFIZER INC-2018295195

PATIENT
  Sex: Female

DRUGS (1)
  1. GENOTROPIN MQ [Suspect]
     Active Substance: SOMATROPIN
     Dosage: 0.4 MG, DAILY
     Dates: start: 201302

REACTIONS (8)
  - Iron binding capacity total increased [Unknown]
  - Blood triglycerides increased [Unknown]
  - Low density lipoprotein increased [Unknown]
  - Glycosylated haemoglobin increased [Unknown]
  - Insulin-like growth factor decreased [Unknown]
  - Very low density lipoprotein increased [Unknown]
  - Platelet count increased [Unknown]
  - Blood cholesterol increased [Unknown]
